FAERS Safety Report 20040977 (Version 2)
Quarter: 2022Q2

REPORT INFORMATION
  Report Type: Report from Study
  Country: US (occurrence: US)
  Receive Date: 20211107
  Receipt Date: 20220408
  Transmission Date: 20220721
  Serious: No
  Sender: FDA-Public Use
  Company Number: US-SA-SAC20211102000944

PATIENT
  Age: 50 Year
  Sex: Female

DRUGS (1)
  1. DUPIXENT [Suspect]
     Active Substance: DUPILUMAB
     Indication: Eczema
     Dosage: 300MG,QOW
     Route: 058
     Dates: start: 202106

REACTIONS (2)
  - Blister [Unknown]
  - Oral herpes [Unknown]

NARRATIVE: CASE EVENT DATE: 20210101
